FAERS Safety Report 5520364-5 (Version None)
Quarter: 2007Q4

REPORT INFORMATION
  Report Type: 
  Country: None (occurrence: None)
  Receive Date: 20071116
  Receipt Date: 20071116
  Transmission Date: 20080405
  Serious: Yes (Other)
  Sender: FDA-Public Use
  Company Number: None

PATIENT
  Sex: Male
  Weight: 92.9874 kg

DRUGS (2)
  1. RESTORIL [Suspect]
     Dosage: 30MG TABLET ONCE ORALLY
     Route: 048
     Dates: start: 20071022
  2. AMBIEN [Suspect]
     Dosage: 10 MG TABLET
     Dates: start: 20071023

REACTIONS (2)
  - NIGHTMARE [None]
  - PARANOIA [None]
